FAERS Safety Report 5954726-9 (Version None)
Quarter: 2008Q4

REPORT INFORMATION
  Report Type: 
  Country: None (occurrence: None)
  Receive Date: 20081117
  Receipt Date: 20081107
  Transmission Date: 20090506
  Serious: Yes (Other)
  Sender: FDA-Public Use
  Company Number: PHHY2008SE27725

PATIENT

DRUGS (10)
  1. TEGRETOL [Suspect]
     Indication: CONVULSION
     Dosage: 1 DF, TID
     Route: 048
  2. TEGRETOL [Suspect]
     Dosage: 2.5 DF
     Route: 048
     Dates: start: 20030101
  3. NEURONTIN [Concomitant]
     Indication: PAIN
     Dosage: UNK
  4. MYSOLINE [Concomitant]
     Dosage: UNK
  5. DIAZEPAM [Concomitant]
     Dosage: UNK
     Dates: start: 19670101
  6. ALVEDON [Concomitant]
     Dosage: 500 MG, 8 PER DAY
  7. ALVEDON [Concomitant]
     Dosage: 500 MG, 1 TO 2 PER DAY
  8. PRIMIDONE [Concomitant]
     Dosage: UNK
  9. PULMICORT-100 [Concomitant]
     Dosage: UNK
  10. RHINOCORT (BECLOMETASONE DIPROPIONATE) [Concomitant]
     Dosage: UNK

REACTIONS (12)
  - HEADACHE [None]
  - HYPERHIDROSIS [None]
  - LUNG DISORDER [None]
  - MUSCULAR WEAKNESS [None]
  - MYALGIA [None]
  - OSTEOARTHRITIS [None]
  - PALPITATIONS [None]
  - POLYNEUROPATHY [None]
  - SENSORY DISTURBANCE [None]
  - TINNITUS [None]
  - URINARY RETENTION [None]
  - WEIGHT DECREASED [None]
